FAERS Safety Report 6924249-9 (Version None)
Quarter: 2010Q3

REPORT INFORMATION
  Report Type: 
  Country: None (occurrence: None)
  Receive Date: 20100811
  Receipt Date: 20100811
  Transmission Date: 20110219
  Serious: Yes (Life-Threatening)
  Sender: FDA-Public Use
  Company Number: None

PATIENT
  Age: 63 Year
  Sex: Male

DRUGS (1)
  1. CETUXIMAB [Suspect]
     Dosage: 500 MG OTHER IV
     Route: 042
     Dates: start: 20100806, end: 20100806

REACTIONS (1)
  - ANAPHYLACTIC REACTION [None]
